FAERS Safety Report 9550114 (Version 1)
Quarter: 2013Q3

REPORT INFORMATION
  Report Type: Spontaneous
  Country: CH (occurrence: CH)
  Receive Date: 20130924
  Receipt Date: 20130924
  Transmission Date: 20140515
  Serious: Yes (Hospitalization)
  Sender: FDA-Public Use
  Company Number: CH-B.I. PHARMACEUTICALS,INC./RIDGEFIELD-2013-BI-29141SI

PATIENT
  Age: 68 Year
  Sex: Female
  Weight: 81 kg

DRUGS (11)
  1. MICARDIS [Suspect]
     Dosage: 80 MG
     Route: 048
     Dates: end: 20130621
  2. ATACAND [Suspect]
     Dosage: 32 MG
     Route: 048
     Dates: end: 20130621
  3. TOREM 10 [Suspect]
     Dosage: 20 MG
     Route: 048
     Dates: end: 20130621
  4. HYGROTON 25MG [Suspect]
     Dosage: 25 MG
     Route: 048
     Dates: end: 20130621
  5. ASPIRIN CARDIO [Concomitant]
     Dosage: 100 MG
     Route: 048
  6. AMLODIPIN [Concomitant]
     Dosage: 10 MG
     Route: 048
  7. SORTIS [Concomitant]
     Dosage: 40 MG
     Route: 048
  8. PANTOZOL [Concomitant]
     Dosage: 40 MG
     Route: 048
  9. NOVOMIX [Concomitant]
     Dosage: 30/70 %
     Route: 048
  10. NEBVOLOL [Concomitant]
     Dosage: 5 MG
     Route: 048
     Dates: end: 20130621
  11. METFIN [Concomitant]
     Dosage: 3 G
     Route: 048
     Dates: end: 20130621

REACTIONS (2)
  - Renal failure acute [Not Recovered/Not Resolved]
  - Medication error [Recovered/Resolved]
